FAERS Safety Report 8774106 (Version 1)
Quarter: 2012Q4

REPORT INFORMATION
  Report Type: 
  Country: US (occurrence: US)
  Receive Date: 20120907
  Receipt Date: 20120907
  Transmission Date: 20130627
  Serious: No
  Sender: FDA-Public Use
  Company Number: US-JNJFOC-20120813071

PATIENT
  Sex: Female
  Weight: 56.7 kg

DRUGS (1)
  1. SANDOZ FENTANYL TRANSDERMAL SYSTEM [Suspect]
     Indication: CANCER PAIN
     Route: 062
     Dates: start: 201207

REACTIONS (3)
  - Inappropriate schedule of drug administration [Recovered/Resolved]
  - Product quality issue [Unknown]
  - Product quality issue [Unknown]
